FAERS Safety Report 5090720-0 (Version None)
Quarter: 2006Q3

REPORT INFORMATION
  Report Type: 
  Country: None (occurrence: None)
  Receive Date: 20060823
  Receipt Date: 20060816
  Transmission Date: 20061208
  Serious: Yes (Hospitalization)
  Sender: FDA-Public Use
  Company Number: 14569

PATIENT
  Age: 71 Year
  Sex: Male
  Weight: 68 kg

DRUGS (3)
  1. LEUCOVORIN CALCIUM [Suspect]
     Indication: BILIARY NEOPLASM
     Dosage: 25 MG/M2 DAILY IV
     Route: 042
  2. FLUOROURACIL [Suspect]
     Indication: BILIARY NEOPLASM
     Dosage: 375 MG/M2 DAILY IV
     Route: 042
  3. ACETYLSALICYLIC ACID [Concomitant]

REACTIONS (2)
  - INFECTION [None]
  - PYREXIA [None]
